FAERS Safety Report 15565601 (Version 1)
Quarter: 2018Q4

REPORT INFORMATION
  Report Type: Spontaneous
  Country: US (occurrence: US)
  Receive Date: 20181025
  Receipt Date: 20181025
  Transmission Date: 20190205
  Serious: No
  Sender: FDA-Public Use
  Company Number: None

PATIENT
  Age: 73 Year
  Sex: Male
  Weight: 112.49 kg

DRUGS (1)
  1. PHOSLYRA [Suspect]
     Active Substance: CALCIUM ACETATE
     Indication: CHRONIC KIDNEY DISEASE
     Dosage: ?          OTHER DOSE:667MG/5ML(15ML);?
     Route: 048
     Dates: start: 20180907, end: 20181016

REACTIONS (1)
  - Pruritus [None]

NARRATIVE: CASE EVENT DATE: 20181016
